FAERS Safety Report 13993773 (Version 2)
Quarter: 2018Q4

REPORT INFORMATION
  Report Type: Spontaneous
  Country: JP (occurrence: JP)
  Receive Date: 20170920
  Receipt Date: 20181217
  Transmission Date: 20190204
  Serious: Yes (Hospitalization, Other)
  Sender: FDA-Public Use
  Company Number: JP-MYLANLABS-2017M1058559

PATIENT
  Age: 77 Year
  Sex: Female
  Weight: 71 kg

DRUGS (2)
  1. CLARITHROMYCIN. [Suspect]
     Active Substance: CLARITHROMYCIN
     Indication: NASOPHARYNGITIS
     Route: 048
  2. WARFARIN [Interacting]
     Active Substance: WARFARIN
     Indication: VENOUS THROMBOSIS LIMB
     Route: 048

REACTIONS (4)
  - Respiratory disorder [Recovered/Resolved]
  - Stenosis [Recovered/Resolved]
  - Laryngeal haematoma [Recovered/Resolved]
  - Drug interaction [Unknown]
